FAERS Safety Report 22654894 (Version 1)
Quarter: 2023Q2

REPORT INFORMATION
  Report Type: Spontaneous
  Country: JP (occurrence: JP)
  Receive Date: 20230629
  Receipt Date: 20230629
  Transmission Date: 20230722
  Serious: Yes (Death)
  Sender: FDA-Public Use
  Company Number: JP-MYE-2023M1068665AA

PATIENT
  Age: 4 Decade
  Sex: Male
  Weight: 67 kg

DRUGS (6)
  1. PHENOBARBITAL [Interacting]
     Active Substance: PHENOBARBITAL
     Indication: Insomnia
     Dosage: UNK
     Route: 065
  2. ACETAMINOPHEN [Suspect]
     Active Substance: ACETAMINOPHEN
     Indication: Analgesic therapy
     Dosage: UNK
     Route: 065
  3. PENTOBARBITAL [Interacting]
     Active Substance: PENTOBARBITAL
     Indication: Insomnia
     Dosage: UNK
     Route: 065
  4. DULOXETINE [Suspect]
     Active Substance: DULOXETINE
     Indication: Psychotic disorder
     Dosage: UNK
     Route: 065
  5. TRAMADOL [Suspect]
     Active Substance: TRAMADOL
     Indication: Analgesic therapy
     Dosage: UNK
     Route: 065
  6. LORAZEPAM [Concomitant]
     Active Substance: LORAZEPAM
     Indication: Product used for unknown indication
     Dosage: UNK
     Route: 065

REACTIONS (4)
  - Depressed level of consciousness [Fatal]
  - Pulmonary congestion [Fatal]
  - Pulmonary oedema [Fatal]
  - Drug interaction [Fatal]
